FAERS Safety Report 24444320 (Version 2)
Quarter: 2024Q4

REPORT INFORMATION
  Report Type: Report from Study
  Country: US (occurrence: US)
  Receive Date: 20241016
  Receipt Date: 20241017
  Transmission Date: 20250115
  Serious: No
  Sender: ROCHE
  Company Number: US-ROCHE-2763297

PATIENT
  Age: 34 Year
  Sex: Female

DRUGS (4)
  1. RITUXAN [Suspect]
     Active Substance: RITUXIMAB
     Indication: Systemic lupus erythematosus
     Dosage: ANTICIPATED DATE OF TREATMENT: 13/JAN/2021 DATE OF SERVICE: 22/MAR/2021, 08/MAR/2021, 02/SEP/2021, 1
     Route: 041
  2. RITUXAN [Suspect]
     Active Substance: RITUXIMAB
     Indication: Dermatomyositis
     Route: 041
  3. RITUXAN [Suspect]
     Active Substance: RITUXIMAB
     Indication: Myopathy
  4. RITUXAN [Suspect]
     Active Substance: RITUXIMAB
     Indication: Autoimmune disorder

REACTIONS (2)
  - Off label use [Unknown]
  - Confusional state [Unknown]
